FAERS Safety Report 9266162 (Version 1)
Quarter: 2013Q2

REPORT INFORMATION
  Report Type: Spontaneous
  Country: US (occurrence: US)
  Receive Date: 20130502
  Receipt Date: 20130502
  Transmission Date: 20140414
  Serious: Yes (Other)
  Sender: FDA-Public Use
  Company Number: US-ROCHE-1181164

PATIENT
  Age: 16 Year
  Sex: Male
  Weight: 133.93 kg

DRUGS (2)
  1. ACCUTANE [Suspect]
     Indication: ACNE
     Route: 065
     Dates: start: 199405, end: 199608
  2. MINOCIN [Concomitant]

REACTIONS (8)
  - Crohn^s disease [Unknown]
  - Inflammatory bowel disease [Unknown]
  - Emotional distress [Not Recovered/Not Resolved]
  - Colitis ulcerative [Unknown]
  - Large intestine polyp [Unknown]
  - Lip dry [Unknown]
  - Stomatitis [Unknown]
  - Lip blister [Unknown]
